FAERS Safety Report 8612807-5 (Version None)
Quarter: 2012Q3

REPORT INFORMATION
  Report Type: 
  Country: None (occurrence: None)
  Receive Date: 20120822
  Receipt Date: 20111007
  Transmission Date: 20120928
  Serious: No
  Sender: FDA-Public Use
  Company Number: US-ASTRAZENECA-2010SE25195

PATIENT
  Age: 43 Year
  Sex: Female

DRUGS (2)
  1. NEXIUM [Suspect]
     Route: 048
  2. SYMBICORT [Suspect]
     Route: 055

REACTIONS (5)
  - CHEST PAIN [None]
  - DYSPNOEA [None]
  - BACK PAIN [None]
  - DRUG DOSE OMISSION [None]
  - MUSCULOSKELETAL CHEST PAIN [None]
